FAERS Safety Report 6687576-9 (Version None)
Quarter: 2010Q2

REPORT INFORMATION
  Report Type: 
  Country: None (occurrence: None)
  Receive Date: 20100416
  Receipt Date: 20100416
  Transmission Date: 20101027
  Serious: Yes (Hospitalization)
  Sender: FDA-Public Use
  Company Number: None

PATIENT

DRUGS (2)
  1. TARCEVA [Suspect]
     Dosage: 3640 MG
  2. GEMCITABINE HCL [Suspect]
     Dosage: 3640 MG

REACTIONS (6)
  - CONFUSIONAL STATE [None]
  - FEELING ABNORMAL [None]
  - INTERVERTEBRAL DISC DEGENERATION [None]
  - OCCIPITAL NEURALGIA [None]
  - SPINAL COLUMN STENOSIS [None]
  - VERTEBRAL FORAMINAL STENOSIS [None]
